FAERS Safety Report 18286224 (Version 1)
Quarter: 2020Q3

REPORT INFORMATION
  Report Type: Spontaneous
  Country: US (occurrence: US)
  Receive Date: 20200919
  Receipt Date: 20200919
  Transmission Date: 20201103
  Serious: No
  Sender: FDA-Public Use
  Company Number: US-009507513-2009USA003581

PATIENT
  Age: 34 Year
  Sex: Male

DRUGS (2)
  1. INTEGRILIN [Suspect]
     Active Substance: EPTIFIBATIDE
     Indication: VERTEBRAL ARTERY ANEURYSM
     Dosage: 135 MICROGRAM PER KILOGRAM FOR ENDOVASCULAR PROCEDURE
  2. INTEGRILIN [Suspect]
     Active Substance: EPTIFIBATIDE
     Dosage: 0.5 MICROGRAM PER KILOGRAM AS MAINTENANCE INFUSION

REACTIONS (1)
  - Product use in unapproved indication [Unknown]
